FAERS Safety Report 4526338-5 (Version None)
Quarter: 2004Q4

REPORT INFORMATION
  Report Type: 
  Country: None (occurrence: None)
  Receive Date: 20041210
  Receipt Date: 20041129
  Transmission Date: 20050328
  Serious: Yes (Other)
  Sender: FDA-Public Use
  Company Number: 2004099917

PATIENT
  Age: 63 Year
  Sex: Female

DRUGS (7)
  1. ATARAX [Suspect]
     Indication: PREMEDICATION
     Dosage: (50 MG), ORAL
     Route: 048
  2. ROPIVACAINE (ROPIVACAINE) [Suspect]
     Indication: LOCAL ANAESTHESIA
  3. SUFENTANIL CITRATE [Suspect]
     Indication: LOCAL ANAESTHESIA
     Dosage: INTRAVENOUS
     Route: 042
  4. SEVOFLURANE [Suspect]
     Indication: GENERAL ANAESTHESIA
     Dosage: INHALATION
     Route: 055
  5. ACETAMINOPHEN [Concomitant]
  6. KETOPROFEN [Concomitant]
  7. NEFOPAM (NEFOPAM) [Concomitant]

REACTIONS (5)
  - ANAESTHETIC COMPLICATION [None]
  - BRADYCARDIA [None]
  - HYPOTENSION [None]
  - PROCEDURAL HYPERTENSION [None]
  - PROCEDURAL HYPOTENSION [None]
